FAERS Safety Report 4590659-0 (Version None)
Quarter: 2005Q1

REPORT INFORMATION
  Report Type: 
  Country: None (occurrence: None)
  Receive Date: 20050218
  Receipt Date: 20050218
  Transmission Date: 20050727
  Serious: Yes (Hospitalization)
  Sender: FDA-Public Use
  Company Number: None

PATIENT
  Age: 57 Year
  Sex: Male
  Weight: 76.2 kg

DRUGS (1)
  1. ONTAK [Suspect]
     Indication: MYELOPROLIFERATIVE DISORDER
     Dosage: 150MCG   3 TIMES/WK SUBCUTANEOUS
     Route: 058
     Dates: start: 20041121, end: 20041208

REACTIONS (6)
  - CAPILLARY LEAK SYNDROME [None]
  - DEHYDRATION [None]
  - DIARRHOEA [None]
  - DRUG TOXICITY [None]
  - HYPOTENSION [None]
  - LIVER FUNCTION TEST ABNORMAL [None]
